FAERS Safety Report 13114502 (Version 8)
Quarter: 2017Q3

REPORT INFORMATION
  Report Type: Report from Study
  Country: DE (occurrence: DE)
  Receive Date: 20170113
  Receipt Date: 20170725
  Transmission Date: 20171127
  Serious: Yes (Disabling, Other)
  Sender: FDA-Public Use
  Company Number: DE-CELGENEUS-DEU-2017011801

PATIENT
  Age: 30 Year
  Sex: Female
  Weight: 73 kg

DRUGS (3)
  1. ABRAXANE [Suspect]
     Active Substance: PACLITAXEL
     Indication: BREAST CANCER
     Dosage: 220 MG
     Route: 041
     Dates: start: 20161025, end: 20161227
  2. MEDI4736 (DURVALUMAB) [Suspect]
     Active Substance: DURVALUMAB
     Indication: BREAST CANCER
     Dosage: 1.5 GRAM
     Route: 041
     Dates: start: 20161011, end: 20170131
  3. ABRAXANE [Suspect]
     Active Substance: PACLITAXEL
     Dosage: 220 MG
     Route: 041
     Dates: start: 20170110, end: 20170131

REACTIONS (3)
  - Transaminases increased [Recovering/Resolving]
  - Hypothyroidism [Recovered/Resolved]
  - Neuropathy peripheral [Recovered/Resolved]

NARRATIVE: CASE EVENT DATE: 20161227
